FAERS Safety Report 22591307 (Version 1)
Quarter: 2023Q2

REPORT INFORMATION
  Report Type: Spontaneous
  Country: CH (occurrence: CH)
  Receive Date: 20230612
  Receipt Date: 20230612
  Transmission Date: 20230722
  Serious: Yes (Hospitalization, Other)
  Sender: FDA-Public Use
  Company Number: None

PATIENT
  Age: 88 Year
  Sex: Female

DRUGS (3)
  1. OLUMIANT [Suspect]
     Active Substance: BARICITINIB
     Indication: Rheumatoid arthritis
     Dosage: UNK UNK, UNKNOWN
     Route: 065
  2. CANDESARTAN [Concomitant]
     Active Substance: CANDESARTAN
     Dosage: UNK UNK, UNKNOWN
     Route: 065
     Dates: end: 20230408
  3. METOPROLOL [Concomitant]
     Active Substance: METOPROLOL
     Dosage: UNK UNK, UNKNOWN
     Route: 065
     Dates: end: 20230408

REACTIONS (7)
  - Mycobacterium avium complex infection [Unknown]
  - Haemophagocytic lymphohistiocytosis [Unknown]
  - Anaemia of chronic disease [Unknown]
  - Urinary tract infection [Unknown]
  - Pulmonary embolism [Unknown]
  - Escherichia pyelonephritis [Unknown]
  - Diverticulitis [Unknown]

NARRATIVE: CASE EVENT DATE: 20230112
